FAERS Safety Report 4474359-3 (Version None)
Quarter: 2004Q4

REPORT INFORMATION
  Report Type: 
  Country: None (occurrence: None)
  Receive Date: 20041013
  Receipt Date: 20041013
  Transmission Date: 20050328
  Serious: No
  Sender: FDA-Public Use
  Company Number: None

PATIENT
  Age: 26 Year
  Sex: Male

DRUGS (1)
  1. OXCARBAZEPINE 2400 MG [Suspect]
     Dosage: 2400 MG QD ORAL
     Route: 048

REACTIONS (1)
  - BLOOD SODIUM DECREASED [None]
